FAERS Safety Report 19781970 (Version 1)
Quarter: 2021Q3

REPORT INFORMATION
  Report Type: Spontaneous
  Country: US (occurrence: US)
  Receive Date: 20210902
  Receipt Date: 20210902
  Transmission Date: 20211014
  Serious: No
  Sender: FDA-Public Use
  Company Number: US-ENDO PHARMACEUTICALS INC-2021-008445

PATIENT
  Sex: Female

DRUGS (3)
  1. PREDNISONE. [Suspect]
     Active Substance: PREDNISONE
     Dosage: 40 MG, IN THE MORNING
     Route: 065
  2. BENADRYL [Suspect]
     Active Substance: DIPHENHYDRAMINE HYDROCHLORIDE
     Indication: IMMUNISATION REACTION
     Dosage: UNK UNKNOWN, UNK
     Route: 065
     Dates: start: 202105
  3. PREDNISONE. [Suspect]
     Active Substance: PREDNISONE
     Indication: IMMUNISATION REACTION
     Dosage: 10 MG, BID
     Route: 065
     Dates: start: 202105

REACTIONS (2)
  - Condition aggravated [Not Recovered/Not Resolved]
  - Urticaria [Not Recovered/Not Resolved]
